FAERS Safety Report 10037694 (Version 2)
Quarter: 2014Q1

REPORT INFORMATION
  Report Type: Report from Study
  Country: FI (occurrence: FI)
  Receive Date: 20140326
  Receipt Date: 20140329
  Transmission Date: 20141002
  Serious: Yes (Other)
  Sender: FDA-Public Use
  Company Number: FI-ROCHE-1365725

PATIENT
  Sex: Male

DRUGS (3)
  1. AVASTIN [Suspect]
     Indication: COLON CANCER METASTATIC
     Route: 065
     Dates: start: 201305
  2. XELODA [Suspect]
     Indication: COLON CANCER METASTATIC
     Route: 065
     Dates: start: 201305
  3. OXALIPLATIN [Concomitant]
     Indication: COLON CANCER METASTATIC

REACTIONS (3)
  - Thrombosis [Unknown]
  - Metastasis [Unknown]
  - Lymphadenopathy [Unknown]
